FAERS Safety Report 11590024 (Version 1)
Quarter: 2015Q4

REPORT INFORMATION
  Report Type: Spontaneous
  Country: FI (occurrence: FI)
  Receive Date: 20151002
  Receipt Date: 20151002
  Transmission Date: 20160304
  Serious: No
  Sender: FDA-Public Use
  Company Number: FI-LINDE GAS NORTH AMERICA LLC-FI-LHC-2015125

PATIENT
  Sex: Female

DRUGS (1)
  1. CONOXIA [Suspect]
     Active Substance: OXYGEN
     Indication: OXYGEN SUPPLEMENTATION
     Dates: start: 20150615, end: 20150615

REACTIONS (2)
  - Nausea [None]
  - Epistaxis [Recovered/Resolved]
